FAERS Safety Report 7263079-8 (Version None)
Quarter: 2011Q1

REPORT INFORMATION
  Report Type: 
  Country: None (occurrence: None)
  Receive Date: 20110130
  Receipt Date: 20101123
  Transmission Date: 20110831
  Serious: No
  Sender: FDA-Public Use
  Company Number: US-ABBOTT-10P-163-0675580-00

PATIENT
  Age: 61 Year
  Sex: Female

DRUGS (10)
  1. IMURAN [Concomitant]
     Indication: CROHN'S DISEASE
  2. SYNTHROID [Concomitant]
     Indication: THYROID FUNCTION TEST ABNORMAL
  3. EVISTA [Concomitant]
     Indication: OSTEOPOROSIS
  4. PAXIL [Concomitant]
     Indication: HOT FLUSH
  5. FENOFIBRATE NANOCRYSTALLIZED [Concomitant]
     Indication: PRODUCT USED FOR UNKNOWN INDICATION
  6. FOSAMAX [Concomitant]
     Indication: OSTEOPOROSIS
  7. HUMIRA [Suspect]
     Indication: CROHN'S DISEASE
     Dates: start: 20090201
  8. D3 OVER THE COUNTER [Concomitant]
     Indication: PRODUCT USED FOR UNKNOWN INDICATION
  9. UNKNOWN MEDICATION [Concomitant]
     Indication: BLOOD PRESSURE
  10. K-DUR [Concomitant]
     Indication: ELECTROLYTE SUBSTITUTION THERAPY

REACTIONS (5)
  - LACERATION [None]
  - INJECTION SITE HAEMATOMA [None]
  - DRUG INEFFECTIVE [None]
  - DEVICE MALFUNCTION [None]
  - DRUG DOSE OMISSION [None]
